FAERS Safety Report 5122215-X (Version None)
Quarter: 2006Q4

REPORT INFORMATION
  Report Type: 
  Country: None (occurrence: None)
  Receive Date: 20061006
  Receipt Date: 20060928
  Transmission Date: 20070319
  Serious: Yes (Hospitalization)
  Sender: FDA-Public Use
  Company Number: IT-ABBOTT-06P-083-0345322-00

PATIENT
  Sex: Female

DRUGS (1)
  1. DEPAKIN SOLUTION [Suspect]
     Indication: PETIT MAL EPILEPSY
     Route: 048
     Dates: start: 20060911, end: 20060911

REACTIONS (3)
  - CHEILITIS [None]
  - PRURITUS GENERALISED [None]
  - RASH MACULAR [None]
